FAERS Safety Report 9637644 (Version 1)
Quarter: 2013Q4

REPORT INFORMATION
  Report Type: Spontaneous
  Country: US (occurrence: None)
  Receive Date: 20131018
  Receipt Date: 20131018
  Transmission Date: 20140711
  Serious: Yes (Death)
  Sender: FDA-Public Use
  Company Number: 2013AP008666

PATIENT
  Age: 21 Year
  Sex: Male

DRUGS (3)
  1. TRAMADOL HYDROCHLORIDE TABLETS [Suspect]
     Route: 048
  2. ALPRAZOLAM [Suspect]
     Route: 048
  3. ETHANOL [Suspect]
     Route: 048

REACTIONS (1)
  - Drug abuse [None]
